FAERS Safety Report 22192296 (Version 1)
Quarter: 2023Q2

REPORT INFORMATION
  Report Type: Spontaneous
  Country: US (occurrence: None)
  Receive Date: 20230409
  Receipt Date: 20230409
  Transmission Date: 20230721
  Serious: Yes (Other)
  Sender: FDA-Public Use
  Company Number: None

PATIENT
  Age: 54 Year
  Sex: Female
  Weight: 63.45 kg

DRUGS (1)
  1. MOUNJARO [Suspect]
     Active Substance: TIRZEPATIDE
     Indication: Weight decreased
     Dosage: OTHER QUANTITY : 1 INJECTION(S);?OTHER ROUTE : INJECTED INTO STOMACH;?
     Route: 050
     Dates: start: 20230405

REACTIONS (7)
  - Palpitations [None]
  - Dyspnoea [None]
  - Pain [None]
  - Abdominal distension [None]
  - Fatigue [None]
  - Insomnia [None]
  - Eructation [None]

NARRATIVE: CASE EVENT DATE: 20230405
